FAERS Safety Report 14095085 (Version 1)
Quarter: 2017Q4

REPORT INFORMATION
  Report Type: Spontaneous
  Country: IR (occurrence: IR)
  Receive Date: 20171016
  Receipt Date: 20171016
  Transmission Date: 20180321
  Serious: Yes (Life-Threatening, Hospitalization)
  Sender: FDA-Public Use
  Company Number: IR-MYLANLABS-2017M1063830

PATIENT
  Age: 10 Year
  Sex: Male

DRUGS (1)
  1. MALATHION. [Suspect]
     Active Substance: MALATHION
     Indication: LICE INFESTATION
     Route: 061

REACTIONS (9)
  - Blood pressure decreased [Recovering/Resolving]
  - Hyperhidrosis [Recovering/Resolving]
  - Miosis [Recovering/Resolving]
  - Depressed level of consciousness [Recovering/Resolving]
  - Dyspnoea [Recovering/Resolving]
  - Seizure [Recovering/Resolving]
  - Loss of consciousness [Recovering/Resolving]
  - Tachycardia [Recovering/Resolving]
  - Chemical poisoning [Recovering/Resolving]
